FAERS Safety Report 9006871 (Version 1)
Quarter: 2013Q1

REPORT INFORMATION
  Report Type: Spontaneous
  Country: US (occurrence: US)
  Receive Date: 20130110
  Receipt Date: 20130110
  Transmission Date: 20140127
  Serious: Yes (Other)
  Sender: FDA-Public Use
  Company Number: US-009507513-1301USA001589

PATIENT
  Age: 70 Year
  Sex: Female

DRUGS (13)
  1. MONTELUKAST SODIUM [Suspect]
     Indication: GASTROINTESTINAL DISORDER
     Dosage: 10 MG, QD
     Route: 048
  2. WARFARIN SODIUM [Suspect]
     Dosage: 5 MG, QD
     Route: 048
  3. PREDNISONE [Suspect]
     Dosage: 5 MG, QD
     Route: 048
  4. PREVACID [Suspect]
     Dosage: A FEW YEARS
     Route: 048
  5. VOLMAX [Suspect]
  6. FLUTICASONE PROPIONATE [Suspect]
     Dosage: UNK, PRN
     Route: 055
  7. SEREVENT DISKUS [Suspect]
     Dosage: UNK, PRN
     Route: 048
  8. ALBUTEROL [Suspect]
     Dosage: PRN
     Route: 055
  9. IPRATROPIUM BROMIDE [Suspect]
     Dosage: PRN
     Route: 055
  10. FUROSEMIDE [Suspect]
     Dosage: 40 MG, BID
     Route: 048
  11. PROMETHAZINE [Suspect]
     Dosage: 25 MG, QD
     Route: 048
  12. DICYCLOMINE HYDROCHLORIDE [Suspect]
     Dosage: 10 MG, QD
     Route: 048
  13. POTASSIUM CHLORIDE [Suspect]
     Dosage: 20 MG, QD
     Route: 048

REACTIONS (2)
  - Haemolytic anaemia [Unknown]
  - Drug interaction [Unknown]
